FAERS Safety Report 14861098 (Version 5)
Quarter: 2018Q4

REPORT INFORMATION
  Report Type: Spontaneous
  Country: None (occurrence: GB)
  Receive Date: 20180508
  Receipt Date: 20181010
  Transmission Date: 20190204
  Serious: Yes (Hospitalization, Other)
  Sender: FDA-Public Use
  Company Number: GB-GLAXOSMITHKLINE-GB2018080024

PATIENT
  Age: 19 Year
  Sex: Female

DRUGS (11)
  1. RANITIDINE. [Suspect]
     Active Substance: RANITIDINE
     Dosage: 1 DF, UNK
     Route: 065
     Dates: end: 20150423
  2. OMEPRAZOLE. [Concomitant]
     Active Substance: OMEPRAZOLE
     Dosage: GRADUALLY REDUCED THE DOSE OVER A 1 WEEK PERIOD
     Route: 065
     Dates: end: 201504
  3. CETIRIZINE [Concomitant]
     Active Substance: CETIRIZINE HYDROCHLORIDE
     Indication: GASTRIC DISORDER
     Dosage: ONE AT NIGHT
     Route: 065
  4. RANITIDINE. [Suspect]
     Active Substance: RANITIDINE
     Indication: GASTRIC DISORDER
     Dosage: MORNING DOSE WAS OMITTED AND 300 MG WAS TAKEN IN THE EVENING
     Route: 065
     Dates: start: 20150424, end: 20150424
  5. SODIUM CHLORIDE. [Concomitant]
     Active Substance: SODIUM CHLORIDE
     Indication: PRODUCT USED FOR UNKNOWN INDICATION
     Dosage: SLOW SODIUM TABLETS
     Route: 065
  6. OMEPRAZOLE. [Concomitant]
     Active Substance: OMEPRAZOLE
     Indication: PRODUCT USED FOR UNKNOWN INDICATION
     Dosage: TWO AT NIGHT
     Route: 065
  7. ONDANSETRON [Concomitant]
     Active Substance: ONDANSETRON
     Indication: PRODUCT USED FOR UNKNOWN INDICATION
     Dosage: NOT TAKEN IN THE WEEK PRIOR TO THE EVENT ; AS NECESSARY
     Route: 065
     Dates: end: 201504
  8. RANITIDINE. [Suspect]
     Active Substance: RANITIDINE
     Dosage: MORNING DOSE WAS TAKEN AND FURTHER DOSING STOPPED
     Route: 065
     Dates: start: 20150425, end: 20150425
  9. RANITIDINE. [Suspect]
     Active Substance: RANITIDINE
     Dosage: 1 DF, QD
     Route: 065
  10. PARACETAMOL [Concomitant]
     Active Substance: ACETAMINOPHEN
     Indication: PRODUCT USED FOR UNKNOWN INDICATION
     Dosage: ONE OR TWO WHEN REQUIRED ; AS NECESSARY
     Route: 065
     Dates: end: 201504
  11. CETIRIZINE [Concomitant]
     Active Substance: CETIRIZINE HYDROCHLORIDE
     Indication: FOOD INTOLERANCE

REACTIONS (2)
  - Anaphylactoid reaction [Recovered/Resolved]
  - Withdrawal syndrome [Recovered/Resolved]

NARRATIVE: CASE EVENT DATE: 20150426
